FAERS Safety Report 11755472 (Version 10)
Quarter: 2016Q1

REPORT INFORMATION
  Report Type: Spontaneous
  Country: US (occurrence: US)
  Receive Date: 20151119
  Receipt Date: 20160309
  Transmission Date: 20160525
  Serious: Yes (Death, Hospitalization, Other)
  Sender: FDA-Public Use
  Company Number: US-GLAXOSMITHKLINE-US2015GSK161939

PATIENT
  Age: 64 Year
  Sex: Male

DRUGS (13)
  1. FLOLAN [Suspect]
     Active Substance: EPOPROSTENOL SODIUM
     Dosage: 55 DF, CO
     Dates: start: 20070222
  2. OPSUMIT [Concomitant]
     Active Substance: MACITENTAN
     Indication: PRODUCT USED FOR UNKNOWN INDICATION
  3. ADEMPAS [Suspect]
     Active Substance: RIOCIGUAT
     Indication: PRODUCT USED FOR UNKNOWN INDICATION
     Dosage: 0.5 MG, TID
  4. ADEMPAS [Suspect]
     Active Substance: RIOCIGUAT
     Dosage: 1.5 MG, TID
  5. ADCIRCA [Concomitant]
     Active Substance: TADALAFIL
     Dosage: UNK
  6. FLOLAN [Suspect]
     Active Substance: EPOPROSTENOL SODIUM
     Dosage: 57 NG/KG/MIN CONTINUOUS
     Route: 042
     Dates: start: 20070222
  7. OPSUMIT [Suspect]
     Active Substance: MACITENTAN
     Indication: PRODUCT USED FOR UNKNOWN INDICATION
     Dosage: UNK
  8. FLOLAN [Suspect]
     Active Substance: EPOPROSTENOL SODIUM
     Dosage: 22 NG/KG/MIN CONTINUOUS
  9. FLOLAN [Suspect]
     Active Substance: EPOPROSTENOL SODIUM
     Dosage: 64.59 NG/KG/MIN CONTINUOUS
     Dates: start: 20070222
  10. WARFARIN [Concomitant]
     Active Substance: WARFARIN
     Dosage: UNK
  11. FLOLAN [Suspect]
     Active Substance: EPOPROSTENOL SODIUM
     Indication: PULMONARY HYPERTENSION
     Dosage: 55 NG/KG/MIN CONTINUOUSLY
     Dates: start: 20070222
  12. FLOLAN [Suspect]
     Active Substance: EPOPROSTENOL SODIUM
     Dosage: 64.6 NG/KG/MIN CONTINUOUS
     Dates: start: 20070222
  13. DILTIAZEM [Concomitant]
     Active Substance: DILTIAZEM

REACTIONS (16)
  - Depression [Unknown]
  - Anxiety [Unknown]
  - Emotional distress [Unknown]
  - Myalgia [Unknown]
  - Pulmonary arterial hypertension [Unknown]
  - Condition aggravated [Unknown]
  - Oxygen supplementation [Unknown]
  - Death [Fatal]
  - Dyspnoea [Unknown]
  - Lung disorder [Unknown]
  - Dizziness [Unknown]
  - Cardiac disorder [Unknown]
  - Headache [Recovered/Resolved]
  - Oedema peripheral [Unknown]
  - Malaise [Unknown]
  - Decreased appetite [Unknown]

NARRATIVE: CASE EVENT DATE: 20151204
